FAERS Safety Report 21174155 (Version 1)
Quarter: 2022Q3

REPORT INFORMATION
  Report Type: Spontaneous
  Country: US (occurrence: None)
  Receive Date: 20220804
  Receipt Date: 20220804
  Transmission Date: 20221027
  Serious: No
  Sender: FDA-Public Use
  Company Number: US-Genus_Lifesciences-USA-POI0580202100124

PATIENT
  Age: 71 Year
  Sex: Female

DRUGS (1)
  1. LEVOTHYROXINE SODIUM [Suspect]
     Active Substance: LEVOTHYROXINE SODIUM
     Indication: Hypothyroidism
     Route: 048

REACTIONS (5)
  - Drug hypersensitivity [Recovered/Resolved]
  - Neuropathy peripheral [Recovered/Resolved]
  - Peripheral coldness [Recovered/Resolved]
  - Lip swelling [Recovered/Resolved]
  - Gait disturbance [Recovered/Resolved]

NARRATIVE: CASE EVENT DATE: 20210101
